FAERS Safety Report 10516179 (Version 2)
Quarter: 2014Q4

REPORT INFORMATION
  Report Type: Spontaneous
  Country: JP (occurrence: JP)
  Receive Date: 20141014
  Receipt Date: 20141022
  Transmission Date: 20150528
  Serious: Yes (Other)
  Sender: FDA-Public Use
  Company Number: JP-RANBAXY-2014RR-86623

PATIENT

DRUGS (1)
  1. SHIN-SEDES [Suspect]
     Active Substance: ACETAMINOPHEN\APRONALIDE\CAFFEINE\ETHENZAMIDE
     Indication: PRODUCT USED FOR UNKNOWN INDICATION
     Dosage: THERAPEUTIC DOSE
     Route: 065

REACTIONS (3)
  - Renal tubular necrosis [Unknown]
  - Kidney enlargement [Unknown]
  - Acute kidney injury [Unknown]
